FAERS Safety Report 4663368-7 (Version None)
Quarter: 2005Q2

REPORT INFORMATION
  Report Type: 
  Country: None (occurrence: None)
  Receive Date: 20050517
  Receipt Date: 20050503
  Transmission Date: 20051028
  Serious: Yes (Hospitalization, Other)
  Sender: FDA-Public Use
  Company Number: DEWYE636703MAY05

PATIENT
  Sex: Male
  Weight: 80 kg

DRUGS (3)
  1. ENBREL [Suspect]
     Indication: RHEUMATOID ARTHRITIS
     Dosage: 25 MG
  2. GLUCOCORTICOSTEROID [Suspect]
     Dosage: UNKNOWN
  3. METHOTREXATE [Suspect]

REACTIONS (1)
  - OSTEONECROSIS [None]
